FAERS Safety Report 4312055-3 (Version None)
Quarter: 2004Q1

REPORT INFORMATION
  Report Type: 
  Country: None (occurrence: None)
  Receive Date: 20040303
  Receipt Date: 20040220
  Transmission Date: 20041129
  Serious: Yes (Hospitalization)
  Sender: FDA-Public Use
  Company Number: 2004200486FR

PATIENT
  Age: 44 Year
  Sex: Male
  Weight: 64 kg

DRUGS (3)
  1. SOLU-MEDROL [Suspect]
     Indication: WEGENER'S GRANULOMATOSIS
     Dosage: IV
     Route: 042
     Dates: start: 20030926, end: 20030930
  2. CYCLOPHOSPHAMIDE [Suspect]
     Indication: WEGENER'S GRANULOMATOSIS
     Dosage: IV
     Route: 042
     Dates: start: 20030929, end: 20031201
  3. PREDNISOLONE [Suspect]
     Indication: WEGENER'S GRANULOMATOSIS
     Dosage: ORAL
     Route: 048
     Dates: start: 20031001

REACTIONS (9)
  - APHASIA [None]
  - CAROTID ARTERY ATHEROMA [None]
  - CAROTID ARTERY STENOSIS [None]
  - CAROTID ARTERY THROMBOSIS [None]
  - FACIAL PALSY [None]
  - HEMIPLEGIA [None]
  - HYPOAESTHESIA [None]
  - ISCHAEMIC STROKE [None]
  - LOSS OF PROPRIOCEPTION [None]
